FAERS Safety Report 6937714-5 (Version None)
Quarter: 2010Q3

REPORT INFORMATION
  Report Type: 
  Country: None (occurrence: None)
  Receive Date: 20100820
  Receipt Date: 20100820
  Transmission Date: 20110219
  Serious: Yes (Life-Threatening, Hospitalization)
  Sender: FDA-Public Use
  Company Number: None

PATIENT
  Age: 61 Year
  Sex: Male
  Weight: 133.8111 kg

DRUGS (13)
  1. BYETTA [Suspect]
     Indication: TYPE 2 DIABETES MELLITUS
     Dosage: (3 YEARS, 9 MONTHS)
     Dates: start: 20060509, end: 20100227
  2. BISOPROLOL [Concomitant]
  3. LISINOPRIL [Concomitant]
  4. PREVACID [Concomitant]
  5. REQUIP [Concomitant]
  6. PRITIQ [Concomitant]
  7. SKELAXIN [Concomitant]
  8. NABUMETONE [Concomitant]
  9. FENTORA [Concomitant]
  10. NORCO [Concomitant]
  11. OPANA [Concomitant]
  12. VALIUM [Concomitant]
  13. KLONOPIN [Concomitant]

REACTIONS (3)
  - ABDOMINAL PAIN [None]
  - PANCREATITIS [None]
  - RENAL DISORDER [None]
